FAERS Safety Report 15315011 (Version 1)
Quarter: 2018Q3

REPORT INFORMATION
  Report Type: Spontaneous
  Country: US (occurrence: US)
  Receive Date: 20180815
  Receipt Date: 20180815
  Transmission Date: 20181010
  Serious: Yes (Death)
  Sender: FDA-Public Use
  Company Number: None

PATIENT
  Age: 63 Year
  Sex: Female

DRUGS (9)
  1. SENSIPAR [Suspect]
     Active Substance: CINACALCET HYDROCHLORIDE
     Indication: KIDNEY MALFORMATION
     Route: 048
     Dates: start: 20180219
  2. OMEPRAZOLE. [Concomitant]
     Active Substance: OMEPRAZOLE
  3. LEVOTHYROXIN [Concomitant]
     Active Substance: LEVOTHYROXINE
  4. ROSUVASTATIN. [Concomitant]
     Active Substance: ROSUVASTATIN
  5. METOPROL SUC [Concomitant]
  6. PARICALCITOL. [Concomitant]
     Active Substance: PARICALCITOL
  7. ALLOPURINOL. [Concomitant]
     Active Substance: ALLOPURINOL
  8. METRONIDAZOL [Concomitant]
     Active Substance: METRONIDAZOLE
  9. TIROSINT [Concomitant]
     Active Substance: LEVOTHYROXINE SODIUM

REACTIONS (1)
  - Death [None]
